FAERS Safety Report 6557373-3 (Version None)
Quarter: 2010Q1

REPORT INFORMATION
  Report Type: 
  Country: None (occurrence: None)
  Receive Date: 20100129
  Receipt Date: 20100118
  Transmission Date: 20100710
  Serious: Yes (Other)
  Sender: FDA-Public Use
  Company Number: PHHY2010DE02484

PATIENT
  Sex: Female
  Weight: 70 kg

DRUGS (1)
  1. ZOMETA [Suspect]
     Indication: ADJUVANT THERAPY
     Dosage: 4 MG, UNK
     Route: 042
     Dates: start: 20091019, end: 20091019

REACTIONS (7)
  - CARDIOVASCULAR DISORDER [None]
  - FALL [None]
  - FEMORAL NECK FRACTURE [None]
  - OROPHARYNGEAL PAIN [None]
  - PAIN IN EXTREMITY [None]
  - PYREXIA [None]
  - SURGERY [None]
